FAERS Safety Report 6155917-7 (Version None)
Quarter: 2009Q2

REPORT INFORMATION
  Report Type: 
  Country: None (occurrence: None)
  Receive Date: 20090413
  Receipt Date: 20090129
  Transmission Date: 20091009
  Serious: Yes (Life-Threatening, Hospitalization)
  Sender: FDA-Public Use
  Company Number: PERC20090014

PATIENT
  Sex: Female

DRUGS (1)
  1. PERCOCET [Suspect]
     Indication: PROCEDURAL PAIN
     Dosage: 1-2 TABS Q4-6H PRN,
     Dates: start: 20080901, end: 20080101

REACTIONS (5)
  - ILEUS PARALYTIC [None]
  - LARGE INTESTINE PERFORATION [None]
  - PERITONITIS [None]
  - POST PROCEDURAL COMPLICATION [None]
  - WEIGHT DECREASED [None]
